FAERS Safety Report 7335134-5 (Version None)
Quarter: 2011Q1

REPORT INFORMATION
  Report Type: 
  Country: None (occurrence: None)
  Receive Date: 20110307
  Receipt Date: 20110209
  Transmission Date: 20110831
  Serious: No
  Sender: FDA-Public Use
  Company Number: US-B.I. PHARMACEUTICALS,INC./RIDGEFIELD-2011-BP-05362BP

PATIENT
  Age: 67 Year
  Sex: Female

DRUGS (5)
  1. PRADAXA [Suspect]
     Indication: CEREBROVASCULAR ACCIDENT PROPHYLAXIS
  2. PREVACID [Concomitant]
  3. PREDNISONE [Concomitant]
     Indication: EOSINOPHILIC PNEUMONIA
     Dates: start: 20000101
  4. PRADAXA [Suspect]
     Indication: ATRIAL FIBRILLATION
     Dosage: 300 MG
     Route: 048
     Dates: start: 20110101
  5. CARAFATE [Concomitant]

REACTIONS (2)
  - OESOPHAGEAL PAIN [None]
  - DYSPEPSIA [None]
